FAERS Safety Report 11529890 (Version 4)
Quarter: 2015Q4

REPORT INFORMATION
  Report Type: Spontaneous
  Country: JP (occurrence: JP)
  Receive Date: 20150921
  Receipt Date: 20151202
  Transmission Date: 20160304
  Serious: Yes (Death, Life-Threatening, Hospitalization)
  Sender: FDA-Public Use
  Company Number: JP-ELI_LILLY_AND_COMPANY-JP201509005051

PATIENT
  Age: 69 Year
  Sex: Male
  Weight: 52 kg

DRUGS (6)
  1. FLORID                             /00310801/ [Suspect]
     Active Substance: MICONAZOLE
     Indication: STOMATITIS
  2. DEPAKENE [Suspect]
     Active Substance: VALPROIC ACID
     Indication: SEIZURE
     Dosage: 200 MG, UNK
     Route: 048
     Dates: start: 20150710
  3. PACLITAXEL. [Concomitant]
     Active Substance: PACLITAXEL
     Indication: GASTRIC CANCER RECURRENT
     Dosage: 120 MG, BIWEEKLY
     Route: 042
     Dates: start: 20141121
  4. PACLITAXEL. [Concomitant]
     Active Substance: PACLITAXEL
     Dosage: 100 MG, BIWEEKLY
     Route: 042
     Dates: start: 20150213, end: 20150828
  5. DECADRON [Concomitant]
     Active Substance: DEXAMETHASONE
     Indication: METASTASES TO CENTRAL NERVOUS SYSTEM
     Dosage: 2 MG, UNK
     Route: 048
  6. CYRAMZA [Suspect]
     Active Substance: RAMUCIRUMAB
     Indication: GASTRIC CANCER RECURRENT
     Dosage: 420 MG, BIWEEKLY
     Route: 042
     Dates: start: 20150724, end: 20150828

REACTIONS (4)
  - Malignant neoplasm progression [Fatal]
  - Interstitial lung disease [Fatal]
  - Pyrexia [Unknown]
  - Stomatitis [Recovered/Resolved]

NARRATIVE: CASE EVENT DATE: 20150814
